FAERS Safety Report 8106906-4 (Version None)
Quarter: 2011Q4

REPORT INFORMATION
  Report Type: 
  Country: None (occurrence: None)
  Receive Date: 20111227
  Receipt Date: 20110921
  Transmission Date: 20120403
  Serious: No
  Sender: FDA-Public Use
  Company Number: PHEH2011US04716

PATIENT
  Age: 45 Year
  Sex: Male

DRUGS (4)
  1. GILENYA [Suspect]
     Indication: MULTIPLE SCLEROSIS
     Dosage: 0.5 MG, QD, ORAL
     Route: 048
  2. MULTI-VIT (VITAMINS NOS) [Concomitant]
  3. LISINOPRIL [Concomitant]
  4. BACLOFEN [Concomitant]

REACTIONS (2)
  - BLISTER [None]
  - RASH [None]
